FAERS Safety Report 7349697-7 (Version None)
Quarter: 2011Q1

REPORT INFORMATION
  Report Type: 
  Country: None (occurrence: None)
  Receive Date: 20110314
  Receipt Date: 20100618
  Transmission Date: 20110831
  Serious: Yes (Hospitalization)
  Sender: FDA-Public Use
  Company Number: US-BAYER-201019664NA

PATIENT
  Sex: Female
  Weight: 68.027 kg

DRUGS (12)
  1. PROPRANOLOL [Concomitant]
     Dosage: UNK
     Dates: start: 20030101
  2. YASMIN [Suspect]
     Indication: ORAL CONTRACEPTION
     Dosage: UNK
     Route: 048
     Dates: end: 20070101
  3. LEVOXYL [Concomitant]
     Dosage: UNK
     Dates: start: 20010101
  4. ASCORBIC ACID [Concomitant]
     Dosage: UNK UNK, QD
  5. PALGIC [CARBINOXAMINE MALEATE] [Concomitant]
     Dosage: UNK
     Dates: start: 20010101
  6. AMBIEN [Concomitant]
  7. HYDROCHLOROTHIAZIDE [Concomitant]
     Dosage: UNK
     Dates: start: 20010101
  8. HYDROCHLOROTHIAZIDE [Concomitant]
     Dosage: UNK
     Dates: start: 20030101
  9. SPIRONOLACTONE [Concomitant]
     Dosage: UNK
     Dates: start: 20010101
  10. VOTREX [Concomitant]
     Dosage: UNK
     Dates: start: 20060101
  11. ADVIL [Concomitant]
     Dosage: UNK UNK, PRN
  12. BENICAR [Concomitant]

REACTIONS (8)
  - NAUSEA [None]
  - ABDOMINAL PAIN UPPER [None]
  - VOMITING [None]
  - CHOLELITHIASIS [None]
  - GALLBLADDER NON-FUNCTIONING [None]
  - CHOLECYSTITIS CHRONIC [None]
  - GALLBLADDER CHOLESTEROLOSIS [None]
  - ABDOMINAL DISTENSION [None]
